FAERS Safety Report 25062934 (Version 3)
Quarter: 2025Q3

REPORT INFORMATION
  Report Type: Spontaneous
  Country: US (occurrence: US)
  Receive Date: 20250311
  Receipt Date: 20250811
  Transmission Date: 20251020
  Serious: Yes (Other)
  Sender: PFIZER
  Company Number: US-PFIZER INC-202500053558

PATIENT
  Age: 50 Year
  Sex: Female

DRUGS (3)
  1. IBRANCE [Suspect]
     Active Substance: PALBOCICLIB
     Route: 048
     Dates: start: 20241016
  2. ANASTROZOLE [Concomitant]
     Active Substance: ANASTROZOLE
  3. ZOLEDRONIC [Concomitant]
     Active Substance: ZOLEDRONIC ACID

REACTIONS (5)
  - Neutropenia [Not Recovered/Not Resolved]
  - Malaise [Unknown]
  - Dry skin [Unknown]
  - Skin lesion inflammation [Unknown]
  - Product dose omission in error [Unknown]

NARRATIVE: CASE EVENT DATE: 20250201
